FAERS Safety Report 5371023-3 (Version None)
Quarter: 2007Q2

REPORT INFORMATION
  Report Type: 
  Country: None (occurrence: None)
  Receive Date: 20070622
  Receipt Date: 20070613
  Transmission Date: 20071010
  Serious: Yes (Hospitalization)
  Sender: FDA-Public Use
  Company Number: 2007-02845

PATIENT
  Age: 62 Year
  Sex: Male

DRUGS (10)
  1. FENTANYL CITRATE [Suspect]
     Indication: ARTERITIS
     Dosage: 75 MCG, Q 3 DAYS, TRANSDERMAL
     Route: 062
  2. FENTANYL CITRATE [Suspect]
     Indication: PAIN
     Dosage: 75 MCG, Q 3 DAYS, TRANSDERMAL
     Route: 062
  3. MORPHINE SULFATE [Suspect]
     Indication: PROCEDURAL PAIN
     Dosage: 2 MG, FOR 2 DOSES, INTRAVENOUS
     Route: 042
     Dates: start: 20060101, end: 20060101
  4. TRAMADOL TABLET [Concomitant]
  5. AMLODIPINE [Concomitant]
  6. CARVEDILOL [Concomitant]
  7. LORAZEPAM [Concomitant]
  8. AMITRIPTYLINE HCL [Concomitant]
  9. METFORMIN HCL [Concomitant]
  10. ATORVASTATIN CALCIUM [Concomitant]

REACTIONS (3)
  - DRUG INEFFECTIVE [None]
  - DRUG INTERACTION POTENTIATION [None]
  - HYPERAESTHESIA [None]
